FAERS Safety Report 13228372 (Version 1)
Quarter: 2017Q1

REPORT INFORMATION
  Report Type: Spontaneous
  Country: US (occurrence: US)
  Receive Date: 20170213
  Receipt Date: 20170213
  Transmission Date: 20170428
  Serious: Yes (Other)
  Sender: FDA-Public Use
  Company Number: US-MYLANLABS-2017M1006195

PATIENT

DRUGS (1)
  1. ESOMEPRAZOLE MAGNESIUM D/R [Suspect]
     Active Substance: ESOMEPRAZOLE MAGNESIUM
     Indication: GASTROOESOPHAGEAL REFLUX DISEASE
     Dosage: UNK
     Dates: start: 20170130

REACTIONS (6)
  - Choking [Recovered/Resolved]
  - Vomiting [Recovered/Resolved]
  - Cough [Recovered/Resolved]
  - Aspiration [Recovered/Resolved]
  - Drug ineffective [Recovered/Resolved]
  - Reaction to drug excipients [Recovered/Resolved]

NARRATIVE: CASE EVENT DATE: 20170131
